FAERS Safety Report 6501569-3 (Version None)
Quarter: 2009Q4

REPORT INFORMATION
  Report Type: 
  Country: None (occurrence: None)
  Receive Date: 20091127
  Receipt Date: 20090115
  Transmission Date: 20100525
  Serious: Yes (Other)
  Sender: FDA-Public Use
  Company Number: WAES 0708USA00153

PATIENT
  Age: 82 Year
  Sex: Female

DRUGS (1)
  1. FOSAMAX [Suspect]
     Indication: OSTEOPOROSIS
     Dosage: 70 MG/WKY/PO
     Route: 048
     Dates: start: 20030502, end: 20060901

REACTIONS (9)
  - ATRIAL FIBRILLATION [None]
  - BASAL CELL CARCINOMA [None]
  - CERVICAL POLYP [None]
  - COAGULOPATHY [None]
  - MENIERE'S DISEASE [None]
  - OSTEONECROSIS [None]
  - POLYP [None]
  - TRANSIENT ISCHAEMIC ATTACK [None]
  - UTERINE POLYP [None]
